FAERS Safety Report 8678287 (Version 3)
Quarter: 2012Q4

REPORT INFORMATION
  Report Type: 
  Country: US (occurrence: US)
  Receive Date: 20120723
  Receipt Date: 20121126
  Transmission Date: 20130627
  Serious: Yes (Death)
  Sender: FDA-Public Use
  Company Number: US-ACTELION-A-US2012-68602

PATIENT
  Age: 9 Year
  Sex: Female

DRUGS (6)
  1. ZAVESCA [Suspect]
     Indication: NIEMANN-PICK DISEASE
     Dosage: 100 mg, bid
     Route: 048
     Dates: start: 20060103, end: 20120711
  2. ROXICET [Concomitant]
  3. VALIUM [Concomitant]
  4. BACLOFEN [Concomitant]
  5. KEPPRA [Concomitant]
  6. OXYCODONE [Concomitant]

REACTIONS (1)
  - Death [Fatal]
